FAERS Safety Report 4620788-4 (Version None)
Quarter: 2005Q1

REPORT INFORMATION
  Report Type: 
  Country: None (occurrence: None)
  Receive Date: 20050325
  Receipt Date: 20050316
  Transmission Date: 20050727
  Serious: Yes (Hospitalization)
  Sender: FDA-Public Use
  Company Number: HQWYE175218MAR05

PATIENT
  Age: 36 Year
  Sex: Female
  Weight: 61.29 kg

DRUGS (4)
  1. EFFEXOR XR [Suspect]
     Indication: DEPRESSION
     Dosage: 150 MMG 1X PER 1 DAY, ORAL
     Route: 048
     Dates: start: 20040101, end: 20041101
  2. TEGRETOL [Suspect]
     Dosage: 400 MG 1X PER 1 DAY
     Dates: start: 20041101, end: 20050201
  3. EFFEXOR XR [Suspect]
     Dosage: 225 MG - FREQUENCY UNSPECIFIED, ORAL
     Route: 048
     Dates: start: 20041101, end: 20050301
  4. EFFEXOR XR [Suspect]
     Dosage: 150 MG - FREQUENCY UNSPECIFIED, ORAL
     Route: 048
     Dates: start: 20050301

REACTIONS (4)
  - CONDITION AGGRAVATED [None]
  - DEPRESSION [None]
  - PHOTOPHOBIA [None]
  - UNEVALUABLE EVENT [None]
